FAERS Safety Report 7089916-8 (Version None)
Quarter: 2010Q4

REPORT INFORMATION
  Report Type: 
  Country: None (occurrence: None)
  Receive Date: 20101108
  Receipt Date: 20101025
  Transmission Date: 20110411
  Serious: Yes (Hospitalization)
  Sender: FDA-Public Use
  Company Number: JP-AMGEN-QUU444339

PATIENT

DRUGS (1)
  1. ENBREL [Suspect]
     Dosage: UNK UNK, UNK
     Route: 058
     Dates: start: 20060501, end: 20100901

REACTIONS (3)
  - CONCOMITANT DISEASE AGGRAVATED [None]
  - PNEUMONIA [None]
  - RHEUMATOID LUNG [None]
